FAERS Safety Report 8440455-9 (Version None)
Quarter: 2012Q2

REPORT INFORMATION
  Report Type: 
  Country: None (occurrence: None)
  Receive Date: 20120615
  Receipt Date: 20120607
  Transmission Date: 20120825
  Serious: Yes (Hospitalization)
  Sender: FDA-Public Use
  Company Number: US-GLAXOSMITHKLINE-A0899757A

PATIENT
  Sex: Male

DRUGS (1)
  1. AVANDIA [Suspect]
     Indication: DIABETES MELLITUS
     Route: 048

REACTIONS (6)
  - TRANSIENT ISCHAEMIC ATTACK [None]
  - BRAIN INJURY [None]
  - HEART INJURY [None]
  - MYOCARDIAL ISCHAEMIA [None]
  - ARTERIOSCLEROSIS [None]
  - CHEST PAIN [None]
